FAERS Safety Report 24463164 (Version 1)
Quarter: 2024Q4

REPORT INFORMATION
  Report Type: Spontaneous
  Country: US (occurrence: US)
  Receive Date: 20241018
  Receipt Date: 20241018
  Transmission Date: 20250115
  Serious: No
  Sender: ADVANZ PHARMA
  Company Number: US-ADVANZ PHARMA-202410008195

PATIENT

DRUGS (1)
  1. TRANYLCYPROMINE SULFATE [Suspect]
     Active Substance: TRANYLCYPROMINE SULFATE
     Indication: Depression
     Dosage: 5 DOSAGE FORM, QD( 3 IN THE MORNING AND 2 IN THE AFTERNOON), FILM COATED TABLET, SINCE 8 YEARS (FILM
     Route: 065

REACTIONS (3)
  - Product residue present [Unknown]
  - Product solubility abnormal [Unknown]
  - Drug ineffective [Unknown]
